FAERS Safety Report 7900406-X (Version None)
Quarter: 2011Q4

REPORT INFORMATION
  Report Type: 
  Country: None (occurrence: None)
  Receive Date: 20111108
  Receipt Date: 20111104
  Transmission Date: 20120403
  Serious: No
  Sender: FDA-Public Use
  Company Number: US-PFIZER INC-2011270870

PATIENT
  Sex: Female
  Weight: 49.887 kg

DRUGS (1)
  1. ADVIL PM [Suspect]
     Indication: SLEEP DISORDER
     Dosage: UNK
     Dates: start: 20111029

REACTIONS (1)
  - DRUG INEFFECTIVE [None]
